FAERS Safety Report 10081125 (Version 1)
Quarter: 2014Q2

REPORT INFORMATION
  Report Type: Spontaneous
  Country: US (occurrence: None)
  Receive Date: 20140415
  Receipt Date: 20140415
  Transmission Date: 20141212
  Serious: No
  Sender: FDA-Public Use
  Company Number: None

PATIENT
  Sex: Male
  Weight: 79.4 kg

DRUGS (1)
  1. XOLAIR [Suspect]
     Indication: URTICARIA CHRONIC
     Route: 058

REACTIONS (1)
  - Weight increased [None]
